FAERS Safety Report 18379748 (Version 1)
Quarter: 2020Q4

REPORT INFORMATION
  Report Type: Spontaneous
  Country: SI (occurrence: SI)
  Receive Date: 20201013
  Receipt Date: 20201013
  Transmission Date: 20210114
  Serious: Yes (Hospitalization, Other)
  Sender: FDA-Public Use
  Company Number: SI-NOVOPROD-754520

PATIENT
  Age: 37 Year
  Sex: Female

DRUGS (20)
  1. INSULATARD FLEXPEN [Suspect]
     Active Substance: INSULIN HUMAN
     Indication: TYPE 2 DIABETES MELLITUS
     Dosage: UNK
     Route: 065
     Dates: start: 2014
  2. NOVORAPID [Suspect]
     Active Substance: INSULIN ASPART
     Indication: TYPE 2 DIABETES MELLITUS
     Dosage: UNK
     Route: 065
     Dates: start: 2014, end: 20190320
  3. NOVORAPID [Suspect]
     Active Substance: INSULIN ASPART
     Dosage: 46 IU, QD
     Route: 065
     Dates: start: 20180111, end: 20180206
  4. NOVORAPID [Suspect]
     Active Substance: INSULIN ASPART
     Dosage: 48 IU, QD
     Route: 065
     Dates: start: 20171019
  5. INSULATARD FLEXPEN [Suspect]
     Active Substance: INSULIN HUMAN
     Dosage: 21 IU
     Route: 065
     Dates: start: 20180221, end: 20180307
  6. NOVORAPID [Suspect]
     Active Substance: INSULIN ASPART
     Dosage: 37 IU, QD
     Route: 065
     Dates: start: 20180321
  7. INSULATARD FLEXPEN [Suspect]
     Active Substance: INSULIN HUMAN
     Dosage: 28 IU
     Route: 065
     Dates: start: 20171019
  8. INSULATARD FLEXPEN [Suspect]
     Active Substance: INSULIN HUMAN
     Dosage: 18 IU
     Route: 065
     Dates: start: 20190320, end: 20190726
  9. INSULATARD FLEXPEN [Suspect]
     Active Substance: INSULIN HUMAN
     Dosage: 18 IU
     Route: 065
     Dates: start: 20180321
  10. INSULATARD FLEXPEN [Suspect]
     Active Substance: INSULIN HUMAN
     Dosage: 20 IU
     Route: 065
     Dates: start: 20180307, end: 20180321
  11. INSULATARD FLEXPEN [Suspect]
     Active Substance: INSULIN HUMAN
     Dosage: 23 IU
     Route: 065
     Dates: start: 20180206, end: 20180221
  12. NOVORAPID [Suspect]
     Active Substance: INSULIN ASPART
     Dosage: 40 IU, QD
     Route: 065
     Dates: start: 20180712, end: 20181029
  13. NOVORAPID [Suspect]
     Active Substance: INSULIN ASPART
     Dosage: 43 IU, QD
     Route: 065
     Dates: start: 20181029, end: 20190320
  14. NOVORAPID [Suspect]
     Active Substance: INSULIN ASPART
     Dosage: 38 IU, QD
     Route: 065
     Dates: start: 20180221, end: 20180307
  15. NOVORAPID [Suspect]
     Active Substance: INSULIN ASPART
     Dosage: 38 IU, QD
     Route: 065
     Dates: start: 20180307, end: 20180321
  16. INSULATARD FLEXPEN [Suspect]
     Active Substance: INSULIN HUMAN
     Dosage: 18 IU
     Route: 065
     Dates: start: 20181029, end: 20190320
  17. INSULATARD FLEXPEN [Suspect]
     Active Substance: INSULIN HUMAN
     Dosage: 25 IU
     Route: 065
     Dates: start: 20180111, end: 20180206
  18. NOVORAPID [Suspect]
     Active Substance: INSULIN ASPART
     Dosage: 35 IU, QD
     Route: 065
     Dates: start: 20180529, end: 20180712
  19. INSULATARD FLEXPEN [Suspect]
     Active Substance: INSULIN HUMAN
     Dosage: 18 IU
     Route: 065
     Dates: start: 20180529, end: 20180712
  20. NOVORAPID [Suspect]
     Active Substance: INSULIN ASPART
     Dosage: 40 IU, QD
     Route: 065
     Dates: start: 20180206, end: 20180221

REACTIONS (3)
  - Maternal exposure during pregnancy [Recovered/Resolved]
  - Abortion spontaneous [Recovered/Resolved]
  - Metabolic surgery [Recovered/Resolved]

NARRATIVE: CASE EVENT DATE: 2016
